FAERS Safety Report 8707666 (Version 4)
Quarter: 2012Q4

REPORT INFORMATION
  Report Type: 
  Country: AU (occurrence: AU)
  Receive Date: 20120806
  Receipt Date: 20121113
  Transmission Date: 20130627
  Serious: Yes (Other)
  Sender: FDA-Public Use
  Company Number: AU-AMGEN-AUSSP2012047988

PATIENT
  Age: 47 Year
  Sex: Male
  Weight: 60.2 kg

DRUGS (2)
  1. ARANESP [Suspect]
     Indication: RENAL TRANSPLANT
     Dosage: 150 mug, qwk
     Route: 058
     Dates: start: 20120723
  2. ARANESP [Suspect]

REACTIONS (4)
  - Aplasia pure red cell [Unknown]
  - Non-neutralising antibodies positive [Unknown]
  - Anti-erythropoietin antibody positive [Unknown]
  - Drug ineffective [Unknown]
